FAERS Safety Report 14383329 (Version 1)
Quarter: 2018Q1

REPORT INFORMATION
  Report Type: Spontaneous
  Country: US (occurrence: US)
  Receive Date: 20180115
  Receipt Date: 20180115
  Transmission Date: 20180509
  Serious: Yes (Other)
  Sender: FDA-Public Use
  Company Number: US-BEH-2018086672

PATIENT
  Age: 40 Year
  Sex: Female
  Weight: 74.83 kg

DRUGS (5)
  1. BERINERT [Suspect]
     Active Substance: HUMAN C1-ESTERASE INHIBITOR
     Indication: HEREDITARY ANGIOEDEMA
     Dosage: 1500 IU, PRN
     Route: 042
     Dates: start: 20110711
  2. SODIUM CHLORIDE. [Concomitant]
     Active Substance: SODIUM CHLORIDE
  3. EPINEPHRINE. [Concomitant]
     Active Substance: EPINEPHRINE
  4. BERINERT [Suspect]
     Active Substance: HUMAN C1-ESTERASE INHIBITOR
     Dosage: UNK
     Route: 042
  5. PRENATAL VITAMINS                  /02014401/ [Concomitant]
     Active Substance: VITAMINS

REACTIONS (2)
  - Abortion spontaneous [Unknown]
  - Female sterilisation [Unknown]

NARRATIVE: CASE EVENT DATE: 20180103
